FAERS Safety Report 8933073 (Version 2)
Quarter: 2012Q4

REPORT INFORMATION
  Report Type: 
  Country: US (occurrence: US)
  Receive Date: 20121129
  Receipt Date: 20121211
  Transmission Date: 20130627
  Serious: Yes (Other)
  Sender: FDA-Public Use
  Company Number: US-BIOGENIDEC-2012BI055509

PATIENT
  Age: 41 Year
  Sex: Female
  Weight: 89 kg

DRUGS (19)
  1. AVONEX [Suspect]
     Indication: RELAPSING-REMITTING MULTIPLE SCLEROSIS
     Route: 030
     Dates: start: 19970101
  2. AVONEX [Suspect]
     Indication: RELAPSING-REMITTING MULTIPLE SCLEROSIS
     Route: 030
     Dates: start: 2003
  3. ENABLEX EXTENDED RELEASE [Concomitant]
     Route: 048
  4. LEXAPRO [Concomitant]
     Route: 048
  5. LEXAPRO [Concomitant]
     Route: 048
  6. HYDROCODONE-ACETAMINOPHEN [Concomitant]
  7. IBUPROFEN [Concomitant]
  8. DOCUSATE SODIUM [Concomitant]
  9. BACTRIM DS [Concomitant]
     Route: 048
     Dates: start: 20120927, end: 20121007
  10. PREDNISONE [Concomitant]
     Route: 048
  11. GILDESS FE [Concomitant]
     Route: 048
  12. AMANTADINE [Concomitant]
     Route: 048
  13. CLINDAMYCIN [Concomitant]
  14. KETOROLAC [Concomitant]
     Route: 030
  15. CHANTIX [Concomitant]
  16. VERAMYST [Concomitant]
     Route: 045
  17. INFLUENZA VACCINE [Concomitant]
     Dates: start: 20090909
  18. INFLUENZA VACCINE [Concomitant]
     Dates: start: 20101001
  19. INFLUENZA VACCINE [Concomitant]
     Route: 030
     Dates: start: 20111010

REACTIONS (4)
  - Convulsion [Unknown]
  - Hysterectomy [Recovered/Resolved]
  - Appendicectomy [Recovered/Resolved]
  - Urge incontinence [Not Recovered/Not Resolved]
